FAERS Safety Report 8262213-0 (Version None)
Quarter: 2012Q2

REPORT INFORMATION
  Report Type: 
  Country: None (occurrence: None)
  Receive Date: 20120405
  Receipt Date: 20120323
  Transmission Date: 20120825
  Serious: Yes (Life-Threatening, Hospitalization, Disabling)
  Sender: FDA-Public Use
  Company Number: FI-ROCHE-1052473

PATIENT
  Sex: Female

DRUGS (2)
  1. XELODA [Suspect]
     Indication: BREAST CANCER
     Route: 048
     Dates: start: 20120131, end: 20120208
  2. DOCETAXEL [Concomitant]
     Indication: BREAST CANCER

REACTIONS (5)
  - THROMBOCYTOPENIA [None]
  - TOXIC ENCEPHALOPATHY [None]
  - KETOACIDOSIS [None]
  - GASTROINTESTINAL MUCOSAL EXFOLIATION [None]
  - NEUTROPENIC SEPSIS [None]
